FAERS Safety Report 7753356-6 (Version None)
Quarter: 2011Q3

REPORT INFORMATION
  Report Type: 
  Country: None (occurrence: None)
  Receive Date: 20110913
  Receipt Date: 20110829
  Transmission Date: 20111222
  Serious: Yes (Hospitalization, Other)
  Sender: FDA-Public Use
  Company Number: 2011-355

PATIENT
  Age: 32 Year
  Sex: Male
  Weight: 99 kg

DRUGS (16)
  1. LYRICA [Concomitant]
  2. MORPHINE SULFATE [Suspect]
     Indication: CERVICAL ROOT PAIN
     Dosage: SEE IMAGE
     Route: 037
     Dates: start: 20110814, end: 20110816
  3. MORPHINE SULFATE [Suspect]
     Indication: CERVICAL ROOT PAIN
     Dosage: SEE IMAGE
     Route: 037
     Dates: start: 20110713, end: 20110814
  4. MORPHINE SULFATE [Suspect]
     Indication: CERVICAL ROOT PAIN
     Dosage: SEE IMAGE
     Route: 037
     Dates: start: 20110816, end: 20110818
  5. MORPHINE SULFATE [Suspect]
     Indication: CERVICAL ROOT PAIN
     Dosage: SEE IMAGE
     Route: 037
     Dates: start: 20110824
  6. MORPHINE SULFATE [Suspect]
     Indication: CERVICAL ROOT PAIN
     Dosage: SEE IMAGE
     Route: 037
     Dates: start: 20110818, end: 20110824
  7. ESGIC-PLUS (BUTALBITAL, CAFFEINE, PARACETAMOL) [Concomitant]
  8. MS CONTIN [Concomitant]
  9. CLONIDINE HCL [Suspect]
     Indication: CERVICAL ROOT PAIN
     Dosage: 0.002 MG, ONCE/HOUR, INTRATHECAL 0.0017 UG ONCE/HOUR 0.0011 UG, ONCE/HOUR, INTRATHECAL
     Route: 037
     Dates: start: 20110818, end: 20110824
  10. CLONIDINE HCL [Suspect]
     Indication: CERVICAL ROOT PAIN
     Dosage: 0.002 MG, ONCE/HOUR, INTRATHECAL 0.0017 UG ONCE/HOUR 0.0011 UG, ONCE/HOUR, INTRATHECAL
     Route: 037
     Dates: start: 20110816, end: 20110818
  11. CLONIDINE HCL [Suspect]
     Indication: CERVICAL ROOT PAIN
     Dosage: 0.002 MG, ONCE/HOUR, INTRATHECAL 0.0017 UG ONCE/HOUR 0.0011 UG, ONCE/HOUR, INTRATHECAL
     Route: 037
     Dates: start: 20110824
  12. XANAX [Concomitant]
  13. VALIUM [Concomitant]
  14. PRIALT [Suspect]
     Indication: CERVICAL ROOT PAIN
     Dosage: 0.04 UG, ONCE/HOUR, INTRATHECAL 0.08 UG, ONCE/HOUR, INTRATHECAL 0.008 UG, ONCE/HOUR, INTRATHECAL
     Route: 037
     Dates: start: 20110713, end: 20110728
  15. PRIALT [Suspect]
     Indication: CERVICAL ROOT PAIN
     Dosage: 0.04 UG, ONCE/HOUR, INTRATHECAL 0.08 UG, ONCE/HOUR, INTRATHECAL 0.008 UG, ONCE/HOUR, INTRATHECAL
     Route: 037
     Dates: start: 20110814, end: 20110816
  16. PRIALT [Suspect]
     Indication: CERVICAL ROOT PAIN
     Dosage: 0.04 UG, ONCE/HOUR, INTRATHECAL 0.08 UG, ONCE/HOUR, INTRATHECAL 0.008 UG, ONCE/HOUR, INTRATHECAL
     Route: 037
     Dates: start: 20110728, end: 20110814

REACTIONS (15)
  - VIITH NERVE PARALYSIS [None]
  - WEIGHT INCREASED [None]
  - NECK PAIN [None]
  - SOMNOLENCE [None]
  - EYE PAIN [None]
  - CONDITION AGGRAVATED [None]
  - NYSTAGMUS [None]
  - OEDEMA PERIPHERAL [None]
  - AGITATION [None]
  - HALLUCINATION, AUDITORY [None]
  - EYELID PTOSIS [None]
  - DELIRIUM [None]
  - BLOOD SODIUM DECREASED [None]
  - PSYCHOTIC DISORDER [None]
  - MENTAL STATUS CHANGES [None]
